FAERS Safety Report 9292460 (Version 1)
Quarter: 2013Q2

REPORT INFORMATION
  Report Type: Spontaneous
  Country: CH (occurrence: CH)
  Receive Date: 20130516
  Receipt Date: 20130516
  Transmission Date: 20140414
  Serious: Yes (Hospitalization)
  Sender: FDA-Public Use
  Company Number: CH-BAYER-2013-058596

PATIENT
  Age: 82 Year
  Sex: Female

DRUGS (11)
  1. ASPIRIN CARDIO [Suspect]
     Indication: ACUTE MYOCARDIAL INFARCTION
     Dosage: 1 DF, QD
     Route: 048
     Dates: start: 20130302, end: 20130408
  2. PLAVIX [Interacting]
     Indication: MYOCARDIAL INFARCTION
     Dosage: 75 MG, QD
     Route: 048
     Dates: start: 20130302
  3. CONCOR [Concomitant]
     Dosage: 5 MG, QD
     Route: 048
  4. ELTROXIN [Concomitant]
     Dosage: 0.05 MG, QD
     Route: 048
  5. TRIATEC [Concomitant]
     Dosage: 5 MG, QD
     Route: 048
  6. LAMOTRIGIN [Concomitant]
     Dosage: 100 MG, QD
     Route: 048
  7. METAMUCIL [Concomitant]
     Dosage: UNK
     Route: 048
  8. ALENDRONATE SODIUM [Concomitant]
     Dosage: 70 MG, QD
     Route: 048
  9. VITAMIN D3 [Concomitant]
     Dosage: UNK
     Route: 048
  10. NITRODERM [Concomitant]
     Dosage: 10 MG, QD
     Route: 062
  11. SORTIS [Concomitant]
     Dosage: 40 MG, QD
     Route: 048

REACTIONS (4)
  - Gastrointestinal haemorrhage [Recovered/Resolved]
  - Anaemia [Recovered/Resolved]
  - Shock haemorrhagic [Recovered/Resolved]
  - Cerebral ischaemia [None]
